FAERS Safety Report 5773883-0 (Version None)
Quarter: 2008Q2

REPORT INFORMATION
  Report Type: 
  Country: None (occurrence: None)
  Receive Date: 20080616
  Receipt Date: 20080611
  Transmission Date: 20081010
  Serious: Yes (Disabling)
  Sender: FDA-Public Use
  Company Number: A0732438A

PATIENT
  Sex: Female

DRUGS (2)
  1. TYKERB [Suspect]
     Indication: COLORECTAL CANCER
     Dosage: 1250MG PER DAY
     Route: 048
     Dates: start: 20080401
  2. XELODA [Concomitant]

REACTIONS (5)
  - ABDOMINAL PAIN [None]
  - BEDRIDDEN [None]
  - FATIGUE [None]
  - MALAISE [None]
  - MUSCULAR WEAKNESS [None]
